FAERS Safety Report 5315006-8 (Version None)
Quarter: 2007Q2

REPORT INFORMATION
  Report Type: 
  Country: None (occurrence: None)
  Receive Date: 20070502
  Receipt Date: 20070427
  Transmission Date: 20071010
  Serious: Yes (Hospitalization, Other)
  Sender: FDA-Public Use
  Company Number: US-GENENTECH-239553

PATIENT
  Sex: Female
  Weight: 47.392 kg

DRUGS (5)
  1. AVASTIN [Suspect]
     Indication: BREAST CANCER METASTATIC
     Dosage: 800 MG, Q3W
     Route: 042
     Dates: start: 20060814, end: 20070305
  2. TAXOTERE [Concomitant]
     Indication: DRUG USE FOR UNKNOWN INDICATION
     Dosage: 75 MG, Q3W
     Dates: start: 20070212, end: 20070305
  3. ABRAXANE [Concomitant]
     Indication: BREAST CANCER METASTATIC
  4. ZOMETA [Concomitant]
     Indication: DRUG USE FOR UNKNOWN INDICATION
     Dosage: 4 MG, Q4W
     Dates: start: 20060130
  5. RADIATION [Concomitant]
     Indication: BONE PAIN

REACTIONS (1)
  - OESOPHAGEAL PERFORATION [None]
